FAERS Safety Report 9670483 (Version 1)
Quarter: 2013Q4

REPORT INFORMATION
  Report Type: Report from Study
  Country: VE (occurrence: VE)
  Receive Date: 20131106
  Receipt Date: 20131106
  Transmission Date: 20140711
  Serious: Yes (Death)
  Sender: FDA-Public Use
  Company Number: VE-ROCHE-1299760

PATIENT
  Age: 58 Year
  Sex: Male
  Weight: 76 kg

DRUGS (2)
  1. XELODA [Suspect]
     Indication: OSTEOSARCOMA
     Route: 065
  2. XELODA [Suspect]
     Route: 065

REACTIONS (1)
  - Stevens-Johnson syndrome [Fatal]
